FAERS Safety Report 8316832-3 (Version None)
Quarter: 2012Q2

REPORT INFORMATION
  Report Type: 
  Country: None (occurrence: None)
  Receive Date: 20120425
  Receipt Date: 20120418
  Transmission Date: 20120825
  Serious: Yes (Other)
  Sender: FDA-Public Use
  Company Number: 2012SP014427

PATIENT
  Age: 65 Year
  Sex: Female
  Weight: 59.9 kg

DRUGS (2)
  1. DEXAMETHASONE [Concomitant]
  2. TEMOZOLOMIDE [Suspect]
     Indication: MALIGNANT MELANOMA
     Dosage: 1095 MG;ONCE
     Dates: start: 20120315

REACTIONS (1)
  - BLOOD CREATINE PHOSPHOKINASE INCREASED [None]
